FAERS Safety Report 16648628 (Version 8)
Quarter: 2021Q2

REPORT INFORMATION
  Report Type: Report from Study
  Country: JP (occurrence: JP)
  Receive Date: 20190730
  Receipt Date: 20210624
  Transmission Date: 20210716
  Serious: Yes (Death, Hospitalization, Other)
  Sender: FDA-Public Use
  Company Number: JP-ASTELLAS-2019JP000594

PATIENT
  Age: 79 Year
  Sex: Female
  Weight: 47 kg

DRUGS (7)
  1. ASP2215 [Suspect]
     Active Substance: GILTERITINIB
     Dosage: 80 MG/DAY, UNKNOWN FREQ.
     Route: 048
  2. ASP2215 [Suspect]
     Active Substance: GILTERITINIB
     Dosage: 80 MG/DAY, UNKNOWN FREQ.
     Route: 048
  3. ASP2215 [Suspect]
     Active Substance: GILTERITINIB
     Dosage: 120 MG/DAY, UNKNOWN FREQ.
     Route: 048
  4. ASP2215 [Suspect]
     Active Substance: GILTERITINIB
     Dosage: 200 MG/DAY, UNKNOWN FREQ.
     Route: 048
     Dates: end: 20190923
  5. ASP2215 [Suspect]
     Active Substance: GILTERITINIB
     Indication: ACUTE MYELOID LEUKAEMIA
     Route: 048
     Dates: start: 20181208
  6. ASP2215 [Suspect]
     Active Substance: GILTERITINIB
     Dosage: 160 MG/DAY, UNKNOWN FREQ.
     Route: 048
  7. ASP2215 [Suspect]
     Active Substance: GILTERITINIB
     Dosage: 40 MG/DAY, UNKNOWN FREQ.
     Route: 048

REACTIONS (6)
  - Cytopenia [Unknown]
  - Hepatic function abnormal [Recovered/Resolved]
  - Herpes zoster [Not Recovered/Not Resolved]
  - Tumour marker increased [Unknown]
  - Rash [Recovered/Resolved]
  - Blast cell count increased [Unknown]

NARRATIVE: CASE EVENT DATE: 20190109
